FAERS Safety Report 6097006-6 (Version None)
Quarter: 2009Q1

REPORT INFORMATION
  Report Type: 
  Country: None (occurrence: None)
  Receive Date: 20090227
  Receipt Date: 20090218
  Transmission Date: 20090719
  Serious: Yes (Other)
  Sender: FDA-Public Use
  Company Number: PHHY2009FR06148

PATIENT
  Sex: Female
  Weight: 51 kg

DRUGS (4)
  1. TRILEPTAL [Suspect]
     Indication: TRIGEMINAL NEURALGIA
     Dosage: 1450 MG, UNK
     Dates: start: 20020902
  2. OROCAL [Concomitant]
     Indication: OSTEOPOROSIS
     Dosage: 2 DF/DAY
     Dates: start: 20020601
  3. BONIVA [Concomitant]
     Indication: OSTEOPOROSIS
     Dosage: 1 DF, QMO
     Dates: start: 20080909
  4. TITANOREINE [Concomitant]
     Indication: HAEMORRHOIDS
     Dosage: 1 APPLICATION, QD
     Dates: start: 20080101

REACTIONS (1)
  - DEPRESSION [None]
